FAERS Safety Report 17532237 (Version 1)
Quarter: 2020Q1

REPORT INFORMATION
  Report Type: Report from Study
  Country: None (occurrence: US)
  Receive Date: 20200311
  Receipt Date: 20200311
  Transmission Date: 20200409
  Serious: Yes (Hospitalization, Other)
  Sender: FDA-Public Use
  Company Number: US-ABBVIE-20K-163-3312073-00

PATIENT
  Age: 64 Year
  Sex: Male

DRUGS (2)
  1. TAMIFLU [Concomitant]
     Active Substance: OSELTAMIVIR PHOSPHATE
     Indication: PRODUCT USED FOR UNKNOWN INDICATION
  2. HUMIRA [Suspect]
     Active Substance: ADALIMUMAB
     Indication: COLITIS ULCERATIVE
     Dosage: CITRATE FREE
     Route: 058
     Dates: start: 20191212

REACTIONS (4)
  - Influenza [Unknown]
  - Urinary tract infection [Not Recovered/Not Resolved]
  - Coronary artery occlusion [Unknown]
  - Troponin increased [Unknown]

NARRATIVE: CASE EVENT DATE: 202003
